FAERS Safety Report 5809548-6 (Version None)
Quarter: 2008Q3

REPORT INFORMATION
  Report Type: 
  Country: None (occurrence: None)
  Receive Date: 20080715
  Receipt Date: 20080711
  Transmission Date: 20090109
  Serious: Yes (Death, Hospitalization, Other)
  Sender: FDA-Public Use
  Company Number: CN-BAYER-200821916GPV

PATIENT
  Age: 57 Year
  Sex: Female

DRUGS (3)
  1. NEXAVAR [Suspect]
     Indication: RENAL CELL CARCINOMA
     Dosage: TOTAL DAILY DOSE: 800 MG  UNIT DOSE: 200 MG
     Route: 048
     Dates: start: 20080623, end: 20080709
  2. INTERFERON [Concomitant]
     Indication: RENAL CELL CARCINOMA
     Route: 065
     Dates: start: 20080623
  3. CHLORPHENIRAMINE MALEATE [Concomitant]
     Indication: RASH
     Route: 065
     Dates: start: 20080703

REACTIONS (6)
  - DEATH [None]
  - DYSPNOEA [None]
  - HYPERPYREXIA [None]
  - PALMAR-PLANTAR ERYTHRODYSAESTHESIA SYNDROME [None]
  - PLATELET COUNT DECREASED [None]
  - RASH [None]
